FAERS Safety Report 23836740 (Version 2)
Quarter: 2024Q4

REPORT INFORMATION
  Report Type: Spontaneous
  Country: JP (occurrence: JP)
  Receive Date: 20240509
  Receipt Date: 20241024
  Transmission Date: 20250114
  Serious: Yes (Death, Other)
  Sender: ABBVIE
  Company Number: JP-ABBVIE-5751249

PATIENT

DRUGS (1)
  1. VENCLEXTA [Suspect]
     Active Substance: VENETOCLAX
     Indication: Acute myeloid leukaemia
     Dosage: FORM STRENGTH: 100 MILLIGRAM
     Route: 048

REACTIONS (39)
  - Death [Fatal]
  - Fatigue [Unknown]
  - Chronic graft versus host disease [Unknown]
  - Acute myeloid leukaemia recurrent [Unknown]
  - Headache [Unknown]
  - Gene mutation identification test positive [Unknown]
  - Hiccups [Unknown]
  - Myelosuppression [Unknown]
  - Eczema [Unknown]
  - Alanine aminotransferase increased [Unknown]
  - Hypertension [Unknown]
  - Blood bilirubin increased [Unknown]
  - Decreased appetite [Unknown]
  - Febrile neutropenia [Unknown]
  - Pharyngitis [Unknown]
  - Aspartate aminotransferase increased [Unknown]
  - Thrombocytopenia [Unknown]
  - Nausea [Unknown]
  - Neutropenia [Unknown]
  - Acute graft versus host disease [Unknown]
  - Constipation [Unknown]
  - Productive cough [Unknown]
  - Palpitations [Unknown]
  - Pruritus [Unknown]
  - Insomnia [Unknown]
  - Anxiety [Unknown]
  - Oedema [Unknown]
  - Dizziness [Unknown]
  - Lower gastrointestinal haemorrhage [Unknown]
  - Anal inflammation [Unknown]
  - Hypokalaemia [Unknown]
  - Blood creatinine increased [Unknown]
  - Anaemia [Unknown]
  - Mucosal inflammation [Unknown]
  - Nephroblastoma [Unknown]
  - Pyrexia [Unknown]
  - Abdominal pain [Unknown]
  - Vomiting [Unknown]
  - Diarrhoea [Unknown]
